FAERS Safety Report 4350761-5 (Version None)
Quarter: 2004Q2

REPORT INFORMATION
  Report Type: 
  Country: None (occurrence: None)
  Receive Date: 20040428
  Receipt Date: 20040409
  Transmission Date: 20050107
  Serious: Yes (Other)
  Sender: FDA-Public Use
  Company Number: USA040464618

PATIENT
  Sex: Female

DRUGS (17)
  1. FORTEO [Suspect]
     Indication: OSTEOPOROSIS
  2. AMBIEN [Concomitant]
  3. CLIMARA [Concomitant]
  4. DEMADEX [Concomitant]
  5. INDERAL LA [Concomitant]
  6. K-DUR 10 [Concomitant]
  7. LIPITOR [Concomitant]
  8. NEXIUM [Concomitant]
  9. PREDNISONE [Concomitant]
  10. TRANXENE [Concomitant]
  11. VICODIN [Concomitant]
  12. VIOXX [Concomitant]
  13. ZOLOFT [Concomitant]
  14. LOMOTIL [Concomitant]
  15. MECLIZINE [Concomitant]
  16. MIGRANAL (DIHYDROERGOTAMINE MESILATE) [Concomitant]
  17. CARIDIAN (MEPINDOLOL SULFATE) [Concomitant]

REACTIONS (1)
  - CONVULSION [None]
